FAERS Safety Report 9689909 (Version 9)
Quarter: 2016Q2

REPORT INFORMATION
  Report Type: Spontaneous
  Country: US (occurrence: US)
  Receive Date: 20131115
  Receipt Date: 20160422
  Transmission Date: 20160815
  Serious: No
  Sender: FDA-Public Use
  Company Number: US-PFIZER INC-2013324240

PATIENT
  Age: 60 Year
  Sex: Female
  Weight: 58 kg

DRUGS (16)
  1. SUTENT [Suspect]
     Active Substance: SUNITINIB MALATE
     Dosage: 37.5 MG, CYCLIC
     Dates: start: 20140120
  2. FIBER [Concomitant]
     Active Substance: PSYLLIUM HUSK
     Dosage: POWDER
  3. SUTENT [Suspect]
     Active Substance: SUNITINIB MALATE
     Dosage: 37.5 MG, DAILY (28 DAYS ON, 14 DAYS OFF)
  4. FLEXERIL [Concomitant]
     Active Substance: CYCLOBENZAPRINE HYDROCHLORIDE
     Dosage: UNK UNK, AS NEEDED
  5. AMBIEN [Concomitant]
     Active Substance: ZOLPIDEM TARTRATE
     Dosage: UNK
     Dates: end: 20160222
  6. SUTENT [Suspect]
     Active Substance: SUNITINIB MALATE
     Dosage: 50 MG EVERY OTHER DAY, 37.5 EVERY OTHER DAY
     Dates: start: 201311
  7. SUTENT [Suspect]
     Active Substance: SUNITINIB MALATE
     Dosage: 25 MG, DAILY
     Dates: start: 201312
  8. SUTENT [Suspect]
     Active Substance: SUNITINIB MALATE
     Dosage: 50 MG, DAILY X4WEEKS
     Dates: start: 201310
  9. VICODIN [Concomitant]
     Active Substance: ACETAMINOPHEN\HYDROCODONE BITARTRATE
     Dosage: UNK UNK, AS NEEDED
  10. STOOL SOFTENER [Concomitant]
     Active Substance: DOCUSATE CALCIUM
     Dosage: UNK
  11. SUTENT [Suspect]
     Active Substance: SUNITINIB MALATE
     Indication: RENAL CANCER STAGE IV
     Dosage: 50 MG, CYCLIC (DAILY, WITH BREAKS) [(4)12.5MG CAPS DAILY]
     Dates: start: 20131023
  12. SUTENT [Suspect]
     Active Substance: SUNITINIB MALATE
     Dosage: 25 MG DAILY, CYCLIC
     Dates: start: 20131221
  13. SUTENT [Suspect]
     Active Substance: SUNITINIB MALATE
     Dosage: 25 MG, CYCLIC
     Dates: end: 20150531
  14. SUTENT [Suspect]
     Active Substance: SUNITINIB MALATE
     Dosage: 25 MG, CYCLIC (DAILY X4 WEEKS THEN 2 WEEKS OFF )
     Route: 048
  15. SUTENT [Suspect]
     Active Substance: SUNITINIB MALATE
     Dosage: 25 MG, CYCLIC (28 DAYS ON/14 DAYS OFF)
     Dates: start: 20160127
  16. MELATONIN [Concomitant]
     Active Substance: MELATONIN
     Dosage: UNK

REACTIONS (19)
  - Dry mouth [Not Recovered/Not Resolved]
  - Constipation [Unknown]
  - Oral pain [Unknown]
  - Glossodynia [Recovered/Resolved]
  - Glossodynia [Not Recovered/Not Resolved]
  - Painful defaecation [Unknown]
  - Stomatitis [Recovered/Resolved]
  - Heart rate increased [Unknown]
  - Pain in extremity [Recovered/Resolved]
  - Herpes zoster [Recovered/Resolved]
  - Muscle spasms [Unknown]
  - Dysgeusia [Not Recovered/Not Resolved]
  - Rectal fissure [Unknown]
  - Palmar-plantar erythrodysaesthesia syndrome [Recovered/Resolved]
  - Faeces hard [Unknown]
  - Anal fissure [Unknown]
  - Tongue discolouration [Not Recovered/Not Resolved]
  - Gingival pain [Not Recovered/Not Resolved]
  - White blood cell count decreased [Unknown]

NARRATIVE: CASE EVENT DATE: 2013
